FAERS Safety Report 10960042 (Version 1)
Quarter: 2015Q1

REPORT INFORMATION
  Report Type: Spontaneous
  Country: US (occurrence: US)
  Receive Date: 20150327
  Receipt Date: 20150327
  Transmission Date: 20150721
  Serious: No
  Sender: FDA-Public Use
  Company Number: US-ASTRAZENECA-2015SE24290

PATIENT
  Age: 49 Year
  Sex: Female
  Weight: 64.4 kg

DRUGS (5)
  1. AMLODIPINE BESYLATE. [Concomitant]
     Active Substance: AMLODIPINE BESYLATE
     Indication: HYPERTENSION
     Dates: start: 2007
  2. NEXIUM [Suspect]
     Active Substance: ESOMEPRAZOLE MAGNESIUM
     Indication: GASTROOESOPHAGEAL REFLUX DISEASE
     Route: 048
     Dates: start: 2007
  3. EPIPEN [Concomitant]
     Active Substance: EPINEPHRINE
     Indication: PALPITATIONS
  4. RHINOCORT AQUA [Suspect]
     Active Substance: BUDESONIDE
     Indication: SEASONAL ALLERGY
     Route: 045
     Dates: start: 2008
  5. EPIPEN [Concomitant]
     Active Substance: EPINEPHRINE
     Indication: URTICARIA

REACTIONS (12)
  - Urticaria [Unknown]
  - Vomiting [Unknown]
  - Drug hypersensitivity [Unknown]
  - Rhinorrhoea [Recovering/Resolving]
  - Sinusitis [Unknown]
  - Adverse event [Not Recovered/Not Resolved]
  - Drug dose omission [Unknown]
  - Nasal discomfort [Not Recovered/Not Resolved]
  - Sneezing [Recovering/Resolving]
  - Gastrooesophageal reflux disease [Not Recovered/Not Resolved]
  - Malaise [Unknown]
  - Intentional product misuse [Not Recovered/Not Resolved]

NARRATIVE: CASE EVENT DATE: 2007
